FAERS Safety Report 6066092-1 (Version None)
Quarter: 2009Q1

REPORT INFORMATION
  Report Type: 
  Country: None (occurrence: None)
  Receive Date: 20090130
  Receipt Date: 20090126
  Transmission Date: 20090719
  Serious: Yes (Death)
  Sender: FDA-Public Use
  Company Number: US025346

PATIENT
  Age: 48 Year
  Sex: Male
  Weight: 72.5755 kg

DRUGS (5)
  1. ACTIQ [Suspect]
     Indication: NEURALGIA
     Dosage: 400 UG BUCCAL
     Route: 002
     Dates: start: 20080101, end: 20081105
  2. LIPITOR [Concomitant]
  3. DIAZEPAM [Concomitant]
  4. SULFADINE [Concomitant]
  5. SPAZNOLE [Concomitant]

REACTIONS (1)
  - OVERDOSE [None]
